FAERS Safety Report 4397084-6 (Version None)
Quarter: 2004Q2

REPORT INFORMATION
  Report Type: 
  Country: None (occurrence: None)
  Receive Date: 20040621
  Receipt Date: 20040326
  Transmission Date: 20050107
  Serious: Yes (Other)
  Sender: FDA-Public Use
  Company Number: USA-2004-0014165

PATIENT
  Sex: Female

DRUGS (5)
  1. OXYCONTIN [Suspect]
     Indication: PAIN
     Dosage: 40 MG, BID
  2. SEROQUEL [Concomitant]
  3. FLEXERIL [Concomitant]
  4. PHENERGAN [Concomitant]
  5. XANAX [Concomitant]

REACTIONS (2)
  - DEPERSONALISATION [None]
  - DRUG DEPENDENCE [None]
